FAERS Safety Report 26028325 (Version 1)
Quarter: 2025Q4

REPORT INFORMATION
  Report Type: Spontaneous
  Country: US (occurrence: US)
  Receive Date: 20251111
  Receipt Date: 20251111
  Transmission Date: 20260118
  Serious: Yes (Other)
  Sender: COOPERSURGICAL
  Company Number: US-COOPERSURGICAL, INC.-2024CPS003310

PATIENT
  Age: 21 Year
  Sex: Female
  Weight: 67.574 kg

DRUGS (1)
  1. PARAGARD T 380A [Suspect]
     Active Substance: COPPER
     Indication: Contraception
     Dosage: UNK
     Route: 015
     Dates: start: 20101115, end: 20161207

REACTIONS (14)
  - Surgery [Recovered/Resolved]
  - Device breakage [Recovered/Resolved]
  - Foreign body in reproductive tract [Recovered/Resolved]
  - Complication of device removal [Recovered/Resolved]
  - Psychological trauma [Not Recovered/Not Resolved]
  - Sensation of foreign body [Unknown]
  - Infection [Unknown]
  - Heavy menstrual bleeding [Not Recovered/Not Resolved]
  - Muscle spasms [Not Recovered/Not Resolved]
  - Pain [Not Recovered/Not Resolved]
  - Menstruation irregular [Not Recovered/Not Resolved]
  - Dysmenorrhoea [Not Recovered/Not Resolved]
  - Unevaluable event [Not Recovered/Not Resolved]
  - Abnormal uterine bleeding [Not Recovered/Not Resolved]

NARRATIVE: CASE EVENT DATE: 20101201
